FAERS Safety Report 14147283 (Version 9)
Quarter: 2018Q4

REPORT INFORMATION
  Report Type: Report from Study
  Country: CA (occurrence: CA)
  Receive Date: 20171101
  Receipt Date: 20181130
  Transmission Date: 20190204
  Serious: Yes (Other)
  Sender: FDA-Public Use
  Company Number: CA-BRISTOL-MYERS SQUIBB COMPANY-BMS-2017-088157

PATIENT
  Age: 57 Year
  Sex: Female

DRUGS (2)
  1. ABATACEPT [Suspect]
     Active Substance: ABATACEPT
     Indication: RHEUMATOID ARTHRITIS
     Dosage: 1000 MG, Q4WK
     Route: 042
     Dates: start: 20140227
  2. ABATACEPT [Suspect]
     Active Substance: ABATACEPT
     Indication: POLYARTHRITIS
     Route: 065

REACTIONS (32)
  - Hypertension [Unknown]
  - Viral pharyngitis [Unknown]
  - Arthritis [Recovering/Resolving]
  - Limb discomfort [Unknown]
  - Tongue fungal infection [Unknown]
  - Secretion discharge [Unknown]
  - Dysphagia [Unknown]
  - Cough [Unknown]
  - Laryngitis viral [Unknown]
  - Ear infection [Recovered/Resolved]
  - Groin pain [Unknown]
  - Neoplasm malignant [Unknown]
  - Headache [Unknown]
  - Heart rate irregular [Recovered/Resolved]
  - Limb mass [Unknown]
  - Fatigue [Unknown]
  - Vomiting [Unknown]
  - Malaise [Unknown]
  - Chest pain [Unknown]
  - Influenza [Unknown]
  - Productive cough [Unknown]
  - Oral infection [Recovering/Resolving]
  - Pneumonitis [Not Recovered/Not Resolved]
  - Obstructive airways disorder [Unknown]
  - Bronchitis [Unknown]
  - Rhinorrhoea [Recovered/Resolved]
  - Wheezing [Not Recovered/Not Resolved]
  - Oedema peripheral [Unknown]
  - Sinusitis [Recovered/Resolved]
  - Pyrexia [Recovered/Resolved]
  - Blood test abnormal [Unknown]
  - Pulmonary mass [Unknown]

NARRATIVE: CASE EVENT DATE: 20171007
